FAERS Safety Report 12682586 (Version 1)
Quarter: 2016Q3

REPORT INFORMATION
  Report Type: Other
  Country: US (occurrence: US)
  Receive Date: 20160825
  Receipt Date: 20160825
  Transmission Date: 20161109
  Serious: Yes (Death, Other)
  Sender: FDA-Public Use
  Company Number: US-VELOXIS PHARMACEUTICALS-1056730

PATIENT
  Age: 8 Year
  Sex: Male

DRUGS (5)
  1. PREDNISONE. [Concomitant]
     Active Substance: PREDNISONE
  2. ENVARSUS XR [Suspect]
     Active Substance: TACROLIMUS
     Indication: CORD BLOOD TRANSPLANT THERAPY
  3. MELPHALAN HYDROCHLORIDE. [Concomitant]
     Active Substance: MELPHALAN HYDROCHLORIDE
  4. MYCOPHENOLATE MOFETIL. [Concomitant]
     Active Substance: MYCOPHENOLATE MOFETIL
  5. FLUDARABINE [Concomitant]
     Active Substance: FLUDARABINE PHOSPHATE

REACTIONS (10)
  - Graft versus host disease in skin [Unknown]
  - Adenovirus infection [None]
  - Drug intolerance [Unknown]
  - Graft versus host disease in gastrointestinal tract [Unknown]
  - BK virus infection [Unknown]
  - Posterior reversible encephalopathy syndrome [Unknown]
  - Sepsis [Fatal]
  - Drug administered to patient of inappropriate age [Unknown]
  - Infection [Unknown]
  - Off label use [Unknown]
